FAERS Safety Report 5796192-2 (Version None)
Quarter: 2008Q3

REPORT INFORMATION
  Report Type: 
  Country: None (occurrence: None)
  Receive Date: 20080701
  Receipt Date: 20080623
  Transmission Date: 20090109
  Serious: Yes (Death, Life-Threatening, Other)
  Sender: FDA-Public Use
  Company Number: GB-JNJFOC-20080504482

PATIENT
  Sex: Female
  Weight: 62 kg

DRUGS (8)
  1. REMICADE [Suspect]
     Indication: RHEUMATOID ARTHRITIS
     Route: 042
  2. BECLOMETHASONE DIPROPIONATE [Concomitant]
  3. CALCICHEW [Concomitant]
  4. DOTHIEPIN HYDROCHLORIDE [Concomitant]
  5. GAVISCON [Concomitant]
  6. HYPROMELLOSE [Concomitant]
  7. INHALERS [Concomitant]
  8. ACETAMINOPHEN [Concomitant]

REACTIONS (1)
  - CORONARY ARTERY DISEASE [None]
